FAERS Safety Report 8592114-X (Version None)
Quarter: 2012Q3

REPORT INFORMATION
  Report Type: 
  Country: None (occurrence: None)
  Receive Date: 20120814
  Receipt Date: 20120801
  Transmission Date: 20120928
  Serious: Yes (Hospitalization)
  Sender: FDA-Public Use
  Company Number: US-BIOGENIDEC-2012BI028127

PATIENT
  Age: 42 Year
  Sex: Female
  Weight: 108 kg

DRUGS (25)
  1. DULOXETIME HYDROCHLORIDE [Concomitant]
  2. ENOXAPARIN [Concomitant]
  3. FUROSEMIDE [Concomitant]
     Indication: HYPERTENSION
  4. TIZANIDINE HYDROCHLORIDE [Concomitant]
  5. OXYCODONE/ACETAMINOPHEN [Concomitant]
  6. DOCUSATE [Concomitant]
     Route: 048
  7. GABAPENTIN [Concomitant]
  8. LEVOTHYROXINE SODIUM [Concomitant]
     Indication: HYPOTHYROIDISM
  9. ALBUTEROL [Concomitant]
  10. BISOCODYL [Concomitant]
  11. OXYCODONE HCL [Concomitant]
  12. ASCORBIC ACID [Concomitant]
     Dates: start: 20091223
  13. INSULIN LISPRO [Concomitant]
     Indication: DIABETES MELLITUS
  14. LORAZEPAM [Concomitant]
  15. DIAZEPAM [Concomitant]
     Route: 048
  16. ACETAMINOPHEN [Concomitant]
  17. TYSABRI [Suspect]
     Indication: MULTIPLE SCLEROSIS
     Route: 042
     Dates: start: 20091120
  18. BACLOFEN [Concomitant]
     Dates: start: 20120322
  19. ONDANSETRON [Concomitant]
  20. EZETIMIBE [Concomitant]
     Indication: HYPERLIPIDAEMIA
  21. LISINOPRIL [Concomitant]
     Indication: HYPERTENSION
  22. ALU-MAG HYDROXIDE-SIMETH [Concomitant]
  23. CHOLECALCIFEROL [Concomitant]
     Route: 048
  24. ESOMEPRAZOLE [Concomitant]
  25. FENOFIBRATE [Concomitant]
     Route: 048

REACTIONS (6)
  - ENCEPHALITIC INFECTION [None]
  - PROGRESSIVE MULTIFOCAL LEUKOENCEPHALOPATHY [None]
  - ESCHERICHIA URINARY TRACT INFECTION [None]
  - BLOOD CALCIUM DECREASED [None]
  - BLOOD GLUCOSE INCREASED [None]
  - UROSEPSIS [None]
